FAERS Safety Report 8324764-X (Version None)
Quarter: 2012Q2

REPORT INFORMATION
  Report Type: 
  Country: None (occurrence: None)
  Receive Date: 20120501
  Receipt Date: 20120419
  Transmission Date: 20120825
  Serious: Yes (Hospitalization)
  Sender: FDA-Public Use
  Company Number: PHHO2012US006602

PATIENT
  Sex: Male
  Weight: 68.49 kg

DRUGS (4)
  1. VALSARTAN [Suspect]
     Dosage: 160 MG, QD
     Route: 048
     Dates: start: 20120101, end: 20120106
  2. VALSARTAN [Suspect]
     Indication: HYPERTENSION
     Dosage: 320 MG, QD
     Route: 048
     Dates: start: 20111119, end: 20111215
  3. VALSARTAN [Suspect]
     Dosage: 320 MG, QD
     Route: 048
     Dates: start: 20111228, end: 20111231
  4. VALSARTAN [Suspect]
     Dosage: 320 MG, QD
     Route: 048
     Dates: start: 20111217, end: 20120106

REACTIONS (3)
  - CHRONIC OBSTRUCTIVE PULMONARY DISEASE [None]
  - INGUINAL HERNIA [None]
  - BRONCHITIS [None]
